FAERS Safety Report 4364431-0 (Version None)
Quarter: 2004Q2

REPORT INFORMATION
  Report Type: 
  Country: None (occurrence: None)
  Receive Date: 20040521
  Receipt Date: 20040512
  Transmission Date: 20050107
  Serious: Yes (Other)
  Sender: FDA-Public Use
  Company Number: US-JNJFOC-20040502834

PATIENT
  Age: 66 Year
  Sex: Female

DRUGS (21)
  1. DURAGESIC [Suspect]
     Indication: PAIN
     Dosage: SEE IMAGE
     Route: 062
     Dates: start: 20040401
  2. DURAGESIC [Suspect]
     Indication: PAIN
     Dosage: SEE IMAGE
     Route: 062
     Dates: start: 20040421
  3. RESTORIL [Concomitant]
  4. COMBI-PATCH (KLIOGEST ^NOVO INDUSTRI^) [Concomitant]
  5. ZOFRAN [Concomitant]
  6. PHENERGAN [Concomitant]
  7. ATIVAN [Concomitant]
  8. ZOMITA (ZOLEDRONIC ACID) [Concomitant]
  9. KYTRIL [Concomitant]
  10. VELCADE/BORTEZOMIB (ALL OTHER THERAPEUTIC PRODUCTS) [Concomitant]
  11. PERCOCET [Concomitant]
  12. ATENOLOL [Concomitant]
  13. LASIX [Concomitant]
  14. VOLTAREN [Concomitant]
  15. PAXIL [Concomitant]
  16. OSCAL (CALCIUM CARBONATE) [Concomitant]
  17. FLONASE [Concomitant]
  18. CLARINEX [Concomitant]
  19. ROBAXIN [Concomitant]
  20. KLOR-CON [Concomitant]
  21. BENADRYL [Concomitant]

REACTIONS (1)
  - COMA [None]
